FAERS Safety Report 5213043-5 (Version None)
Quarter: 2007Q1

REPORT INFORMATION
  Report Type: 
  Country: None (occurrence: None)
  Receive Date: 20070117
  Receipt Date: 20070103
  Transmission Date: 20070707
  Serious: Yes (Hospitalization)
  Sender: FDA-Public Use
  Company Number: 2006US000457

PATIENT
  Age: 62 Year
  Sex: Female
  Weight: 95.2 kg

DRUGS (11)
  1. FK506E (MR4) (TACROLIMUS) CAPSULE [Suspect]
     Indication: RENAL TRANSPLANT
     Dosage: 11.00 MG, UID/QD, ORAL
     Route: 048
     Dates: start: 20040310
  2. CELLCEPT [Concomitant]
  3. PREDNISONE TAB [Concomitant]
  4. ASPIRIN [Concomitant]
  5. SODIUM BICARBONATE IN PLASTIC CONTAINER [Concomitant]
  6. NORVASC [Concomitant]
  7. DEMADEX [Concomitant]
  8. HUMALOG [Concomitant]
  9. LANTUS [Concomitant]
  10. LIPITOR [Concomitant]
  11. DIOVAN [Concomitant]

REACTIONS (6)
  - GANGRENE [None]
  - NECROSIS [None]
  - OSTEOMYELITIS BACTERIAL [None]
  - PERIPHERAL VASCULAR DISORDER [None]
  - PSEUDOMONAS INFECTION [None]
  - TOE AMPUTATION [None]
